FAERS Safety Report 13057426 (Version 1)
Quarter: 2016Q4

REPORT INFORMATION
  Report Type: Report from Study
  Country: BR (occurrence: BR)
  Receive Date: 20161223
  Receipt Date: 20161223
  Transmission Date: 20170207
  Serious: Yes (Other)
  Sender: FDA-Public Use
  Company Number: BR-ORION CORPORATION ORION PHARMA-ENTC2016-0753

PATIENT
  Sex: Male
  Weight: 83 kg

DRUGS (4)
  1. LEPONEX [Suspect]
     Active Substance: CLOZAPINE
     Indication: SENILE DEMENTIA
     Dosage: AT NOON
     Route: 065
  2. STALEVO [Suspect]
     Active Substance: CARBIDOPA\ENTACAPONE\LEVODOPA
     Indication: PARKINSON^S DISEASE
     Dosage: STOPPED 5 YEARS AGO
     Route: 065
  3. LEPONEX [Suspect]
     Active Substance: CLOZAPINE
     Indication: DEMENTIA ALZHEIMER^S TYPE
     Dosage: AT NIGHT
     Route: 065
  4. LEPONEX [Suspect]
     Active Substance: CLOZAPINE
     Indication: PARKINSON^S DISEASE
     Route: 065

REACTIONS (4)
  - Hallucination [Recovering/Resolving]
  - Abasia [Unknown]
  - Speech disorder [Unknown]
  - Visual impairment [Recovering/Resolving]
